FAERS Safety Report 18967729 (Version 1)
Quarter: 2021Q1

REPORT INFORMATION
  Report Type: Spontaneous
  Country: JP (occurrence: JP)
  Receive Date: 20210304
  Receipt Date: 20210304
  Transmission Date: 20210420
  Serious: Yes (Other)
  Sender: FDA-Public Use
  Company Number: JP-009507513-2102JPN002120J

PATIENT
  Age: 82 Year
  Sex: Male

DRUGS (2)
  1. KEYTRUDA [Suspect]
     Active Substance: PEMBROLIZUMAB
     Indication: CLEAR CELL RENAL CELL CARCINOMA
     Dosage: 200 MILLIGRAM, Q3W
     Route: 041
  2. INLYTA [Suspect]
     Active Substance: AXITINIB
     Indication: CLEAR CELL RENAL CELL CARCINOMA
     Dosage: UNK
     Route: 065

REACTIONS (3)
  - Dementia [Unknown]
  - Palmar-plantar erythrodysaesthesia syndrome [Unknown]
  - Decreased appetite [Unknown]
